FAERS Safety Report 9925522 (Version 2)
Quarter: 2014Q1

REPORT INFORMATION
  Report Type: Spontaneous
  Country: IT (occurrence: IT)
  Receive Date: 20140226
  Receipt Date: 20140307
  Transmission Date: 20141002
  Serious: Yes (Other)
  Sender: FDA-Public Use
  Company Number: IT-AMGEN-ITASP2014012941

PATIENT
  Age: 70 Year
  Sex: Female

DRUGS (5)
  1. ENBREL [Suspect]
     Indication: RHEUMATOID ARTHRITIS
     Dosage: 50 MG, WEEKLY
     Route: 058
     Dates: start: 20090701
  2. MEDROL /00049601/ [Suspect]
     Indication: RHEUMATOID ARTHRITIS
     Dosage: 2 MG, DAILY
     Route: 048
     Dates: start: 20040101
  3. TRITTICO [Concomitant]
     Dosage: 75 MG, UNK
     Route: 065
  4. COUMADIN                           /00014802/ [Concomitant]
     Dosage: UNK UNK, UNK
  5. PANTORC [Concomitant]
     Dosage: UNK UNK, UNK

REACTIONS (2)
  - Hypertensive crisis [Recovered/Resolved with Sequelae]
  - Tachycardia [Recovered/Resolved with Sequelae]
